FAERS Safety Report 6165987-8 (Version None)
Quarter: 2009Q2

REPORT INFORMATION
  Report Type: 
  Country: None (occurrence: None)
  Receive Date: 20090422
  Receipt Date: 20090415
  Transmission Date: 20091009
  Serious: Yes (Other)
  Sender: FDA-Public Use
  Company Number: 1000005796

PATIENT
  Age: 84 Year
  Sex: Male

DRUGS (2)
  1. LEXAPRO [Suspect]
     Indication: ANXIETY
     Dosage: 10 MG (10 MG, 1 IN 1 D), ORAL,  20 MG (20 MG, 1 IN 1 D), ORAL, 30 MG (30 MG, 1 IN 1 D), ORAL,
     Route: 048
     Dates: end: 20090411
  2. LEXAPRO [Suspect]
     Indication: DEPRESSION
     Dosage: 10 MG (10 MG, 1 IN 1 D), ORAL,  20 MG (20 MG, 1 IN 1 D), ORAL, 30 MG (30 MG, 1 IN 1 D), ORAL,
     Route: 048
     Dates: end: 20090411

REACTIONS (4)
  - FALL [None]
  - OVERDOSE [None]
  - PELVIC FRACTURE [None]
  - URINARY RETENTION [None]
